FAERS Safety Report 23577724 (Version 2)
Quarter: 2024Q1

REPORT INFORMATION
  Report Type: Report from Study
  Country: BR (occurrence: None)
  Receive Date: 20240228
  Receipt Date: 20240301
  Transmission Date: 20240409
  Serious: Yes (Hospitalization)
  Sender: FDA-Public Use
  Company Number: 2024A045382

PATIENT
  Sex: Female
  Weight: 69.2 kg

DRUGS (7)
  1. DURVALUMAB [Suspect]
     Active Substance: DURVALUMAB
     Indication: Hepatocellular carcinoma
     Dosage: EVERY 28 DAYS
     Route: 042
     Dates: start: 20230914, end: 20240201
  2. DURVALUMAB\TREMELIMUMAB [Suspect]
     Active Substance: DURVALUMAB\TREMELIMUMAB
     Indication: Hepatocellular carcinoma
     Dosage: ONCE; 300MG+1500MG
     Route: 042
     Dates: start: 20230817, end: 20230817
  3. BACLOFEN [Concomitant]
     Active Substance: BACLOFEN
     Dosage: ONCE
     Route: 048
     Dates: start: 20240217, end: 20240217
  4. DEXAMETHASONE [Concomitant]
     Active Substance: DEXAMETHASONE
     Dosage: ONCE
     Route: 042
     Dates: start: 20240217, end: 20240217
  5. DIPYRONE [Concomitant]
     Active Substance: DIPYRONE
     Route: 042
     Dates: start: 20240217
  6. GABAPENTIN [Concomitant]
     Active Substance: GABAPENTIN
     Dosage: ONCE
     Route: 048
     Dates: start: 20240217, end: 20240218
  7. CYCLOBENZAPRINE [Concomitant]
     Active Substance: CYCLOBENZAPRINE
     Route: 048
     Dates: start: 20240218

REACTIONS (1)
  - Vertebral lesion [Unknown]
